FAERS Safety Report 15920162 (Version 3)
Quarter: 2019Q2

REPORT INFORMATION
  Report Type: Spontaneous
  Country: IT (occurrence: IT)
  Receive Date: 20190205
  Receipt Date: 20190404
  Transmission Date: 20190711
  Serious: Yes (Hospitalization)
  Sender: FDA-Public Use
  Company Number: IT-PFIZER INC-2019047981

PATIENT
  Age: 68 Year
  Sex: Female

DRUGS (5)
  1. LEFLUNOMIDE MYLAN [Concomitant]
     Active Substance: LEFLUNOMIDE
     Dosage: UNK
     Dates: start: 20180118, end: 20181012
  2. METHOTREXATE. [Suspect]
     Active Substance: METHOTREXATE
     Indication: PSORIATIC ARTHROPATHY
     Dosage: 2 DF, WEEKLY
     Route: 048
     Dates: start: 20180824, end: 20181012
  3. FLIXABI [Suspect]
     Active Substance: INFLIXIMAB
     Indication: PSORIATIC ARTHROPATHY
     Dosage: 100 MG, CYCLIC
     Route: 042
     Dates: start: 20180824, end: 20181012
  4. FOLINA [FOLIC ACID] [Concomitant]
     Dosage: UNK
     Route: 048
     Dates: start: 20180831, end: 20181012
  5. CIPRALEX [Concomitant]
     Active Substance: ESCITALOPRAM OXALATE
     Dosage: UNK

REACTIONS (1)
  - Pain [Not Recovered/Not Resolved]

NARRATIVE: CASE EVENT DATE: 20181005
